FAERS Safety Report 11893752 (Version 3)
Quarter: 2016Q1

REPORT INFORMATION
  Report Type: Spontaneous
  Country: BR (occurrence: BR)
  Receive Date: 20160106
  Receipt Date: 20160322
  Transmission Date: 20160526
  Serious: Yes (Hospitalization, Other)
  Sender: FDA-Public Use
  Company Number: BR-AMGEN-BRASP2015112440

PATIENT
  Age: 36 Year
  Sex: Female
  Weight: 65 kg

DRUGS (25)
  1. CENTRUM [Concomitant]
     Active Substance: VITAMINS
     Dosage: 1 TABLET, 2X/DAY
  2. ENBREL [Suspect]
     Active Substance: ETANERCEPT
     Indication: ANKYLOSING SPONDYLITIS
     Dosage: 50 MG, ONCE A WEEK
     Route: 058
     Dates: start: 20150915, end: 201512
  3. DEPAKOTE [Concomitant]
     Active Substance: DIVALPROEX SODIUM
     Indication: HEADACHE
     Dosage: 500 MG, 1X/DAY (AT NIGHT)
     Dates: start: 201504
  4. ENBREL [Suspect]
     Active Substance: ETANERCEPT
     Dosage: 50 MG, ONCE WEEKLY
     Route: 058
     Dates: start: 2013
  5. OMEPRAZOLE. [Concomitant]
     Active Substance: OMEPRAZOLE
     Indication: METABOLIC SURGERY
     Dosage: 25 MG, 1X/DAY
     Dates: start: 2010
  6. DIPYRONE [Concomitant]
     Active Substance: DIPYRONE
     Indication: HEADACHE
     Dosage: 40 GTT, UNSPECIFIED FREQUENCY
     Dates: start: 201504
  7. ACARBOSE. [Concomitant]
     Active Substance: ACARBOSE
     Dosage: STRENGTH 50 MG, 1X/DAY (BEFORE LUNCH)
  8. VITAMIN C [Concomitant]
     Active Substance: ASCORBIC ACID
     Dosage: UNK, 2X/DAY FOR 15 DAYS
  9. OMEPRAZOLE. [Concomitant]
     Active Substance: OMEPRAZOLE
     Dosage: 40 MG, ONCE A DAY
  10. AMYTRIL [Concomitant]
     Active Substance: AMITRIPTYLINE HYDROCHLORIDE
     Indication: INSOMNIA
     Dosage: 25 MG, 1X/DAY
     Dates: start: 201304
  11. TRAMAL [Concomitant]
     Active Substance: TRAMADOL
     Dosage: 20 DROGS EVERY 8 HOURS (3X/DAY)
  12. ACARBOSE. [Concomitant]
     Active Substance: ACARBOSE
     Dosage: STRENGTH 50 MG, 1X/DAY (BEFORE LUNCH)
  13. GABAPENTIN. [Concomitant]
     Active Substance: GABAPENTIN
     Indication: HEADACHE
     Dosage: 300 MG, 2X/DAY
     Dates: start: 2014
  14. VITAMIN B1 [Concomitant]
     Active Substance: THIAMINE HYDROCHLORIDE
     Dosage: UNK, 1X/DAY
  15. ADDERA D3 [Concomitant]
     Active Substance: CHOLECALCIFEROL
     Indication: OSTEOPOROSIS PROPHYLAXIS
     Dosage: UNK
     Dates: start: 2015
  16. GABAPENTINE [Concomitant]
     Active Substance: GABAPENTIN
     Indication: HEADACHE
     Dosage: 300 MG, 1X/DAY
     Dates: start: 2014
  17. TRAMAL [Concomitant]
     Active Substance: TRAMADOL
     Dosage: 50 MG, 3X/DAY
  18. CENTRUM                            /02267801/ [Concomitant]
     Dosage: UNK, 1X/DAY
  19. GABAPENTIN. [Concomitant]
     Active Substance: GABAPENTIN
     Dosage: STRENGTH 200MG, 2X/DAY
  20. AMYTRIL [Concomitant]
     Active Substance: AMITRIPTYLINE HYDROCHLORIDE
     Dosage: 50 MG, 1X/DAY,(AT NIGHT)
  21. RIVOTRIL [Concomitant]
     Active Substance: CLONAZEPAM
     Dosage: STRENGTH 2.5MG, AT 18 DROPS AT NIGHT
  22. GABAPENTINE [Concomitant]
     Active Substance: GABAPENTIN
     Dosage: 200 MG, 2X/DAY
  23. ENBREL [Suspect]
     Active Substance: ETANERCEPT
     Dosage: UNK
     Route: 065
     Dates: start: 201309, end: 20150827
  24. RIVOTRIL [Concomitant]
     Active Substance: CLONAZEPAM
     Indication: INSOMNIA
     Dosage: 10 DROPS AT NIGHT
     Dates: start: 201204
  25. PREDNISONE. [Concomitant]
     Active Substance: PREDNISONE
     Dosage: 20 MG, 1X/DAY

REACTIONS (21)
  - Hypoglycaemia [Unknown]
  - Disease recurrence [Unknown]
  - Spinal pain [Unknown]
  - Headache [Unknown]
  - Respiratory disorder [Unknown]
  - Excoriation [Unknown]
  - Uveitis [Unknown]
  - Movement disorder [Unknown]
  - Anxiety [Unknown]
  - Syncope [Unknown]
  - Muscle spasms [Unknown]
  - Arthralgia [Unknown]
  - Tremor [Unknown]
  - Anaemia [Unknown]
  - Pain [Unknown]
  - Hypovitaminosis [Unknown]
  - Fibromyalgia [Unknown]
  - Ulcerative keratitis [Unknown]
  - Disease progression [Unknown]
  - Seizure [Unknown]
  - Ankylosing spondylitis [Unknown]

NARRATIVE: CASE EVENT DATE: 2014
